FAERS Safety Report 23036885 (Version 12)
Quarter: 2024Q3

REPORT INFORMATION
  Report Type: Report from Study
  Country: BR (occurrence: BR)
  Receive Date: 20231006
  Receipt Date: 20240828
  Transmission Date: 20241017
  Serious: Yes (Other)
  Sender: NOVARTIS
  Company Number: BR-002147023-NVSC2023BR168490

PATIENT
  Age: 55 Year
  Sex: Female
  Weight: 52 kg

DRUGS (15)
  1. KISQALI [Suspect]
     Active Substance: RIBOCICLIB
     Indication: Breast cancer
     Dosage: UNK
     Route: 065
  2. KISQALI [Suspect]
     Active Substance: RIBOCICLIB
     Dosage: 3 DOSAGE FORM, QD (3 TABLETS) (STOP DATE: AFTER ONE MONTH OF THE TREATMENT START)
     Route: 048
     Dates: start: 20220801, end: 202209
  3. KISQALI [Suspect]
     Active Substance: RIBOCICLIB
     Dosage: 3 DOSAGE FORM, QD (3 TABLETS)
     Route: 048
     Dates: start: 202209
  4. KISQALI [Suspect]
     Active Substance: RIBOCICLIB
     Dosage: UNK
     Route: 065
  5. KISQALI [Suspect]
     Active Substance: RIBOCICLIB
     Dosage: 2 DOSAGE FORM, QD (2 TABLETS, ONCE PER DAY)
     Route: 048
     Dates: start: 202209
  6. KISQALI [Suspect]
     Active Substance: RIBOCICLIB
     Dosage: UNK
     Route: 065
  7. KISQALI [Suspect]
     Active Substance: RIBOCICLIB
     Dosage: UNK
     Route: 065
     Dates: start: 20231130
  8. KISQALI [Suspect]
     Active Substance: RIBOCICLIB
     Dosage: UNK
     Route: 065
     Dates: start: 20231214
  9. KISQALI [Suspect]
     Active Substance: RIBOCICLIB
     Dosage: UNK
     Route: 065
     Dates: start: 20240213
  10. KISQALI [Suspect]
     Active Substance: RIBOCICLIB
     Dosage: UNK
     Route: 065
  11. ZOMETA [Suspect]
     Active Substance: ZOLEDRONIC ACID
     Indication: Breast cancer
     Dosage: UNK UNK, Q3MO (1 APPLICATION EVERY 3 MONTHS)
     Route: 065
     Dates: start: 202208
  12. ANASTROZOLE [Suspect]
     Active Substance: ANASTROZOLE
     Indication: Breast cancer
     Dosage: 1 DOSAGE FORM, QD
     Route: 048
     Dates: start: 202208
  13. HYDROCHLOROTHIAZIDE [Concomitant]
     Active Substance: HYDROCHLOROTHIAZIDE
     Indication: Hypertension
     Dosage: 1 DOSAGE FORM, QMO (ONCE PER DAY (EVERY OTHER DAY) (1 TABLET) (TEUTO) (START DATE: 4 OR 5 MONTHS AGO
     Route: 065
  14. TAPAZOLE [Concomitant]
     Active Substance: METHIMAZOLE
     Indication: Hypothyroidism
     Dosage: 1 DOSAGE FORM, QD (1 TABLET) (START DATE: A YEAR AGO)
     Route: 048
     Dates: end: 202307
  15. TAPAZOLE [Concomitant]
     Active Substance: METHIMAZOLE
     Dosage: 1 DOSAGE FORM, 05 MG (ON ODD DAYS) (1 TABLET)
     Route: 048
     Dates: start: 202307

REACTIONS (28)
  - Hepatotoxicity [Unknown]
  - Hypertension [Unknown]
  - Haemoptysis [Recovered/Resolved]
  - Epistaxis [Not Recovered/Not Resolved]
  - Blood creatinine abnormal [Not Recovered/Not Resolved]
  - Laboratory test abnormal [Recovered/Resolved]
  - Laboratory test abnormal [Not Recovered/Not Resolved]
  - Blood creatinine increased [Unknown]
  - Malaise [Recovered/Resolved]
  - Decreased immune responsiveness [Recovered/Resolved]
  - Decreased immune responsiveness [Recovered/Resolved]
  - Decreased immune responsiveness [Not Recovered/Not Resolved]
  - Platelet count decreased [Recovered/Resolved]
  - Somnolence [Recovered/Resolved]
  - Fatigue [Recovered/Resolved]
  - Limb injury [Recovered/Resolved]
  - Platelet count decreased [Unknown]
  - Haemorrhage [Unknown]
  - Malaise [Recovered/Resolved]
  - Abdominal discomfort [Recovered/Resolved]
  - Fatigue [Unknown]
  - Head discomfort [Unknown]
  - Rhinitis [Unknown]
  - Rhinorrhoea [Unknown]
  - Thyroid disorder [Unknown]
  - Confusional state [Unknown]
  - Malaise [Unknown]
  - Off label use [Unknown]

NARRATIVE: CASE EVENT DATE: 20220801
